FAERS Safety Report 19972234 (Version 1)
Quarter: 2021Q4

REPORT INFORMATION
  Report Type: Spontaneous
  Country: US (occurrence: US)
  Receive Date: 20211020
  Receipt Date: 20211020
  Transmission Date: 20220303
  Serious: Yes (Other)
  Sender: FDA-Public Use
  Company Number: US-INCYTE CORPORATION-2021IN009492

PATIENT

DRUGS (3)
  1. JAKAFI [Suspect]
     Active Substance: RUXOLITINIB
     Indication: Iron deficiency anaemia
     Dosage: 20 MILLIGRAM, BID
     Route: 048
     Dates: start: 20210331
  2. JAKAFI [Suspect]
     Active Substance: RUXOLITINIB
     Indication: Anaemia
     Dosage: 5 MILLIGRAM, BID
     Route: 048
     Dates: start: 20211012
  3. JAKAFI [Suspect]
     Active Substance: RUXOLITINIB
     Dosage: 5 MILLIGRAM, QD
     Route: 048

REACTIONS (6)
  - Haemoglobin decreased [Unknown]
  - Vomiting [Unknown]
  - Off label use [Unknown]
  - Product dose omission in error [Unknown]
  - Nausea [Unknown]
  - Dizziness [Recovering/Resolving]

NARRATIVE: CASE EVENT DATE: 20210331
